FAERS Safety Report 5710548-5 (Version None)
Quarter: 2008Q2

REPORT INFORMATION
  Report Type: 
  Country: None (occurrence: None)
  Receive Date: 20080415
  Receipt Date: 20080404
  Transmission Date: 20081010
  Serious: Yes (Death, Hospitalization, Other)
  Sender: FDA-Public Use
  Company Number: 2008-00853

PATIENT
  Age: 69 Year
  Sex: Female
  Weight: 60 kg

DRUGS (2)
  1. VELCADE [Suspect]
     Indication: ACUTE MYELOID LEUKAEMIA
     Dosage: 0.70 MG/M2, IV BOLUS
     Route: 042
     Dates: start: 20080229, end: 20080307
  2. 17-ALLYLAMINOGELDANAMYCIN(17-ALLYLAMINOGELDANAMYCIN) INFUSION [Suspect]
     Indication: ACUTE MYELOID LEUKAEMIA
     Dosage: 200 MG/M2, INTRAVENOUS
     Route: 042
     Dates: start: 20080229, end: 20080307

REACTIONS (30)
  - ALANINE AMINOTRANSFERASE INCREASED [None]
  - ASPARTATE AMINOTRANSFERASE INCREASED [None]
  - ATELECTASIS [None]
  - BLOOD ALKALINE PHOSPHATASE INCREASED [None]
  - BLOOD BILIRUBIN INCREASED [None]
  - BLOOD CALCIUM DECREASED [None]
  - BLOOD CREATININE INCREASED [None]
  - BLOOD CULTURE POSITIVE [None]
  - BLOOD PRESSURE DECREASED [None]
  - BLOOD SODIUM DECREASED [None]
  - CHEST X-RAY ABNORMAL [None]
  - DIARRHOEA [None]
  - DISEASE PROGRESSION [None]
  - ELECTROCARDIOGRAM QT PROLONGED [None]
  - EYE OEDEMA [None]
  - FATIGUE [None]
  - FLUID OVERLOAD [None]
  - HYPOXIA [None]
  - LUNG CONSOLIDATION [None]
  - NEUTROPHIL COUNT DECREASED [None]
  - OXYGEN SATURATION DECREASED [None]
  - PLEURAL EFFUSION [None]
  - PYREXIA [None]
  - RETINAL HAEMORRHAGE [None]
  - STAPHYLOCOCCAL INFECTION [None]
  - SUPRAVENTRICULAR TACHYCARDIA [None]
  - TORSADE DE POINTES [None]
  - TROPONIN I INCREASED [None]
  - VISION BLURRED [None]
  - VITREOUS FLOATERS [None]
